FAERS Safety Report 18755243 (Version 1)
Quarter: 2021Q1

REPORT INFORMATION
  Report Type: Spontaneous
  Country: US (occurrence: US)
  Receive Date: 20210115
  Receipt Date: 20210115
  Transmission Date: 20210419
  Serious: Yes (Hospitalization)
  Sender: FDA-Public Use
  Company Number: None

PATIENT
  Age: 53 Year
  Sex: Female

DRUGS (8)
  1. AVONEX PEN [Suspect]
     Active Substance: INTERFERON BETA-1A
     Indication: MULTIPLE SCLEROSIS
     Dosage: ?          OTHER DOSE:1 PEN;?
     Route: 030
     Dates: start: 20140104
  2. FOLIC ACID. [Concomitant]
     Active Substance: FOLIC ACID
  3. LAMOTRIGINE. [Concomitant]
     Active Substance: LAMOTRIGINE
  4. METOPROL SUC ER [Concomitant]
     Active Substance: METOPROLOL SUCCINATE
  5. CEPHALEXIN. [Concomitant]
     Active Substance: CEPHALEXIN
  6. HYDROCHLOROT [Concomitant]
     Active Substance: HYDROCHLOROTHIAZIDE
  7. SMZ/TMP DS [Concomitant]
     Active Substance: SULFAMETHOXAZOLE\TRIMETHOPRIM
  8. NORLYDA [Concomitant]
     Active Substance: NORETHINDRONE

REACTIONS (2)
  - Limb operation [None]
  - Condition aggravated [None]

NARRATIVE: CASE EVENT DATE: 20201226
